FAERS Safety Report 24738829 (Version 2)
Quarter: 2024Q4

REPORT INFORMATION
  Report Type: Spontaneous
  Country: US (occurrence: US)
  Receive Date: 20241216
  Receipt Date: 20241216
  Transmission Date: 20250115
  Serious: No
  Sender: ALEXION PHARMACEUTICALS
  Company Number: US-AstraZeneca-CH-00765658AP

PATIENT
  Age: 69 Year

DRUGS (4)
  1. BYDUREON [Suspect]
     Active Substance: EXENATIDE
  2. BYDUREON [Suspect]
     Active Substance: EXENATIDE
     Route: 058
  3. BYDUREON [Suspect]
     Active Substance: EXENATIDE
  4. BYDUREON [Suspect]
     Active Substance: EXENATIDE
     Route: 058

REACTIONS (5)
  - Incorrect dose administered [Unknown]
  - Blood glucose increased [Unknown]
  - Injection site pain [Unknown]
  - Incorrect dose administered [Unknown]
  - Wrong technique in device usage process [Unknown]
